FAERS Safety Report 5565122-0 (Version None)
Quarter: 2007Q4

REPORT INFORMATION
  Report Type: 
  Country: None (occurrence: None)
  Receive Date: 20071218
  Receipt Date: 20071210
  Transmission Date: 20080405
  Serious: Yes (Hospitalization, Other)
  Sender: FDA-Public Use
  Company Number: AT-ASTRAZENECA-2007PK02631

PATIENT
  Sex: Female

DRUGS (2)
  1. ARIMIDEX [Suspect]
     Route: 048
     Dates: end: 20070101
  2. NOLVADEX [Suspect]
     Dates: start: 20070101, end: 20070101

REACTIONS (3)
  - RASH [None]
  - THROMBOSIS [None]
  - VASCULITIS [None]
